FAERS Safety Report 21033394 (Version 1)
Quarter: 2022Q3

REPORT INFORMATION
  Report Type: Spontaneous
  Country: US (occurrence: US)
  Receive Date: 20220701
  Receipt Date: 20220701
  Transmission Date: 20221026
  Serious: Yes (Other)
  Sender: FDA-Public Use
  Company Number: US-BAUSCH-BL-2022-016261

PATIENT
  Age: 74 Year
  Sex: Male

DRUGS (1)
  1. IPRATROPIUM BROMIDE [Suspect]
     Active Substance: IPRATROPIUM BROMIDE
     Indication: Sinus congestion
     Dosage: IN THE EVENING, 2 SPRAYS IN EACH NOSTRIL
     Route: 045
     Dates: start: 20220622, end: 20220622

REACTIONS (7)
  - Sinus congestion [Recovering/Resolving]
  - Condition aggravated [Recovering/Resolving]
  - Mouth breathing [Recovering/Resolving]
  - Head discomfort [Recovering/Resolving]
  - Eye discharge [Recovering/Resolving]
  - Headache [Recovering/Resolving]
  - Sneezing [Recovering/Resolving]
